FAERS Safety Report 21977019 (Version 2)
Quarter: 2023Q1

REPORT INFORMATION
  Report Type: Report from Study
  Country: US (occurrence: US)
  Receive Date: 20230210
  Receipt Date: 20230220
  Transmission Date: 20230418
  Serious: Yes (Congenital Anomaly)
  Sender: FDA-Public Use
  Company Number: US-ABBVIE-4301597

PATIENT
  Sex: Female

DRUGS (1)
  1. NORVIR [Suspect]
     Active Substance: RITONAVIR
     Indication: HIV infection
     Route: 048

REACTIONS (10)
  - Talipes [Unknown]
  - Cardiac malposition [Unknown]
  - Hydrocephalus [Unknown]
  - Congenital diaphragmatic hernia [Unknown]
  - Muscle contracture [Unknown]
  - Cerebral ventricle dilatation [Unknown]
  - Kyphosis [Unknown]
  - Scoliosis [Unknown]
  - Hand deformity [Unknown]
  - Foetal exposure during pregnancy [Unknown]
